FAERS Safety Report 4788559-6 (Version None)
Quarter: 2005Q4

REPORT INFORMATION
  Report Type: 
  Country: None (occurrence: None)
  Receive Date: 20051005
  Receipt Date: 20050926
  Transmission Date: 20060501
  Serious: Yes (Other)
  Sender: FDA-Public Use
  Company Number: BR-JNJFOC-20051000358

PATIENT
  Age: 2 Year
  Sex: Female

DRUGS (1)
  1. HALDOL [Suspect]
     Dosage: (2 TABLETS AT ONE TIME)
     Route: 048

REACTIONS (2)
  - ACCIDENTAL DRUG INTAKE BY CHILD [None]
  - SOMNOLENCE [None]
